FAERS Safety Report 17172648 (Version 1)
Quarter: 2019Q4

REPORT INFORMATION
  Report Type: Spontaneous
  Country: US (occurrence: US)
  Receive Date: 20191219
  Receipt Date: 20191219
  Transmission Date: 20200122
  Serious: No
  Sender: FDA-Public Use
  Company Number: US-SA-2019SA348343

PATIENT
  Age: 42 Year
  Sex: Male

DRUGS (4)
  1. RELIEF [PHENYLEPHRINE HYDROCHLORIDE] [Concomitant]
     Indication: HYPERSENSITIVITY
  2. DUPIXENT [Suspect]
     Active Substance: DUPILUMAB
     Indication: NASAL POLYPS
     Dosage: 2 ML, QOW
     Route: 058
  3. AMOXICILLIN. [Concomitant]
     Active Substance: AMOXICILLIN
  4. RELIEF [PHENYLEPHRINE HYDROCHLORIDE] [Concomitant]
     Indication: NASAL CONGESTION

REACTIONS (2)
  - Arthralgia [Recovering/Resolving]
  - Joint stiffness [Recovering/Resolving]
